FAERS Safety Report 6026098-5 (Version None)
Quarter: 2008Q4

REPORT INFORMATION
  Report Type: 
  Country: None (occurrence: None)
  Receive Date: 20081230
  Receipt Date: 20081218
  Transmission Date: 20090506
  Serious: Yes (Death)
  Sender: FDA-Public Use
  Company Number: WAES 0812USA04238

PATIENT
  Age: 66 Year
  Sex: Male

DRUGS (1)
  1. VYTORIN [Suspect]
     Dosage: PO
     Route: 048

REACTIONS (3)
  - HEPATIC FAILURE [None]
  - IDIOSYNCRATIC DRUG REACTION [None]
  - LIVER INJURY [None]
